FAERS Safety Report 5902592-X (Version None)
Quarter: 2008Q3

REPORT INFORMATION
  Report Type: 
  Country: None (occurrence: None)
  Receive Date: 20080924
  Receipt Date: 20080917
  Transmission Date: 20090109
  Serious: Yes (Hospitalization)
  Sender: FDA-Public Use
  Company Number: LTI2008A00267

PATIENT
  Age: 84 Year
  Sex: Female

DRUGS (10)
  1. ACTOS [Suspect]
     Indication: TYPE 2 DIABETES MELLITUS
     Dosage: 30 MG (30 MG, 1 IN 1 D) ORAL
     Route: 048
     Dates: end: 20080802
  2. DIAMICRON (GLICLAZIDE) [Suspect]
     Indication: TYPE 2 DIABETES MELLITUS
     Dosage: 30 MG (30 MG, 1 IN  D) ORAL
     Route: 048
     Dates: end: 20080802
  3. PERINDOPRIL ERBUMINE [Suspect]
     Indication: HYPERTENSION
     Dosage: 2 MG (2 MG, 1 IN 1 D) ORAL
     Route: 048
  4. TENORMIN [Suspect]
     Indication: ARRHYTHMIA SUPRAVENTRICULAR
     Dosage: 100 MG (100 MG, 1 D) ORAL
     Route: 048
  5. LASIX [Concomitant]
  6. PREVISCAN (FLUINDIONE) [Concomitant]
  7. OMEPRAZOLE [Concomitant]
  8. IMOVANE (ZOPICLONE) [Concomitant]
  9. POTASSIUM CHLORIDE [Concomitant]
  10. CIPROFLOXACIN HCL [Concomitant]

REACTIONS (9)
  - APATHY [None]
  - AREFLEXIA [None]
  - CONFUSIONAL STATE [None]
  - DISORIENTATION [None]
  - DRUG INTERACTION [None]
  - HYPOGLYCAEMIA [None]
  - PROTEUS INFECTION [None]
  - SPEECH DISORDER [None]
  - URINARY TRACT INFECTION [None]
